FAERS Safety Report 16391970 (Version 2)
Quarter: 2019Q3

REPORT INFORMATION
  Report Type: Report from Study
  Country: AU (occurrence: AU)
  Receive Date: 20190605
  Receipt Date: 20190703
  Transmission Date: 20191004
  Serious: Yes (Hospitalization)
  Sender: FDA-Public Use
  Company Number: AU-BRISTOL-MYERS SQUIBB COMPANY-BMS-2019-053645

PATIENT
  Age: 68 Year
  Sex: Male

DRUGS (8)
  1. NIVOLUMAB [Suspect]
     Active Substance: NIVOLUMAB
     Indication: RENAL CELL CARCINOMA
     Dosage: UNK
     Route: 065
     Dates: start: 20181017
  2. IBUPROFEN. [Concomitant]
     Active Substance: IBUPROFEN
     Indication: BONE PAIN
     Dosage: 400 MILLIGRAM
     Route: 048
     Dates: start: 20190318
  3. BETAMETHASONE DIPROPIONATE. [Concomitant]
     Active Substance: BETAMETHASONE DIPROPIONATE
     Indication: RASH
     Dosage: 1 DOSAGE FORM
     Route: 061
     Dates: start: 20190117
  4. PANTOPRAZOLE [Concomitant]
     Active Substance: PANTOPRAZOLE
     Indication: PROPHYLAXIS
     Dosage: 40 MILLIGRAM
     Route: 065
     Dates: start: 20190318
  5. NILSTAT [NYSTATIN] [Concomitant]
     Indication: ORAL CANDIDIASIS
     Dosage: 1 MILLILITER
     Route: 048
     Dates: start: 20190318
  6. DOXEPIN [Concomitant]
     Active Substance: DOXEPIN
     Indication: RASH
     Dosage: 10 MILLIGRAM
     Route: 048
     Dates: start: 20190422
  7. PREDNISONE. [Concomitant]
     Active Substance: PREDNISONE
     Indication: RASH
     Dosage: 10 MILLIGRAM
     Route: 048
     Dates: start: 20190422
  8. PARACETAMOL [Concomitant]
     Active Substance: ACETAMINOPHEN
     Indication: BONE PAIN
     Dosage: 1 GRAM
     Route: 048
     Dates: start: 20181029

REACTIONS (1)
  - Troponin T increased [Recovered/Resolved]

NARRATIVE: CASE EVENT DATE: 20190528
